FAERS Safety Report 9493349 (Version 1)
Quarter: 2013Q3

REPORT INFORMATION
  Report Type: Spontaneous
  Country: US (occurrence: US)
  Receive Date: 20130902
  Receipt Date: 20130902
  Transmission Date: 20140515
  Serious: Yes (Life-Threatening, Other)
  Sender: FDA-Public Use
  Company Number: PHEH2013US018122

PATIENT
  Sex: Male

DRUGS (3)
  1. SANDOSTATIN LAR DEPOT [Suspect]
     Indication: METASTATIC CARCINOID TUMOUR
     Dosage: 20 MG, UNK
  2. SANDOSTATIN LAR DEPOT [Suspect]
     Dosage: 30 MG, UNK
  3. COLESTIPOL [Concomitant]
     Dosage: UNK UKN, UNK

REACTIONS (2)
  - Neoplasm [Unknown]
  - Diarrhoea [Unknown]
